FAERS Safety Report 4922427-1 (Version None)
Quarter: 2006Q1

REPORT INFORMATION
  Report Type: 
  Country: None (occurrence: None)
  Receive Date: 20060224
  Receipt Date: 20060214
  Transmission Date: 20060701
  Serious: Yes (Other)
  Sender: FDA-Public Use
  Company Number: US-MERCK-0602USA05014

PATIENT
  Age: 61 Year
  Sex: Male
  Weight: 64 kg

DRUGS (1)
  1. VIOXX [Suspect]
     Indication: PAIN
     Route: 048
     Dates: start: 20031001

REACTIONS (4)
  - ANXIETY [None]
  - ASTHENIA [None]
  - HEART RATE INCREASED [None]
  - MYOCARDIAL INFARCTION [None]
